FAERS Safety Report 14675436 (Version 1)
Quarter: 2018Q1

REPORT INFORMATION
  Report Type: Spontaneous
  Country: US (occurrence: US)
  Receive Date: 20180323
  Receipt Date: 20180323
  Transmission Date: 20180509
  Serious: Yes (Death, Other)
  Sender: FDA-Public Use
  Company Number: US-PFIZER INC-2018115689

PATIENT
  Age: 82 Year
  Sex: Female
  Weight: 31.75 kg

DRUGS (2)
  1. LIPITOR [Suspect]
     Active Substance: ATORVASTATIN CALCIUM
     Indication: BLOOD CHOLESTEROL ABNORMAL
     Dosage: UNK
  2. XANAX [Suspect]
     Active Substance: ALPRAZOLAM
     Dosage: UNK

REACTIONS (7)
  - General physical health deterioration [Unknown]
  - Depression [Unknown]
  - Lung neoplasm malignant [Fatal]
  - Dementia Alzheimer^s type [Unknown]
  - Irritability [Unknown]
  - Prescription drug used without a prescription [Unknown]
  - Abnormal behaviour [Unknown]
